FAERS Safety Report 24418768 (Version 3)
Quarter: 2024Q4

REPORT INFORMATION
  Report Type: Spontaneous
  Country: GB (occurrence: GB)
  Receive Date: 20241009
  Receipt Date: 20241028
  Transmission Date: 20250115
  Serious: Yes (Disabling, Other)
  Sender: ESPERION THERAPEUTICS
  Company Number: None

PATIENT
  Age: 75 Year
  Sex: Male
  Weight: 65 kg

DRUGS (3)
  1. BEMPEDOIC ACID\EZETIMIBE [Suspect]
     Active Substance: BEMPEDOIC ACID\EZETIMIBE
     Indication: Blood cholesterol
     Dosage: 180/10 MG (BEMPEDOIC ACID 180MG / EZETIMIBE 10MG)
     Route: 065
     Dates: start: 202307, end: 20240818
  2. MIRTAZAPINE [Concomitant]
     Active Substance: MIRTAZAPINE
     Indication: Product used for unknown indication
     Dosage: UNK
     Route: 065
     Dates: start: 20161016
  3. RABEPRAZOLE [Concomitant]
     Active Substance: RABEPRAZOLE
     Indication: Product used for unknown indication
     Dosage: UNK
     Route: 065
     Dates: start: 20001215

REACTIONS (5)
  - Muscle rupture [Recovered/Resolved with Sequelae]
  - Tendon injury [Unknown]
  - Muscle injury [Unknown]
  - Tendon rupture [Recovered/Resolved with Sequelae]
  - Gait inability [Unknown]

NARRATIVE: CASE EVENT DATE: 20230817
